FAERS Safety Report 25054518 (Version 1)
Quarter: 2025Q1

REPORT INFORMATION
  Report Type: Report from Study
  Country: US (occurrence: US)
  Receive Date: 20250307
  Receipt Date: 20250307
  Transmission Date: 20250408
  Serious: Yes (Other)
  Sender: ABBVIE
  Company Number: US-ABBVIE-6161360

PATIENT
  Sex: Male

DRUGS (1)
  1. SKYRIZI [Suspect]
     Active Substance: RISANKIZUMAB-RZAA
     Indication: Psoriasis
     Route: 058
     Dates: start: 20230929

REACTIONS (5)
  - Atrial fibrillation [Unknown]
  - COVID-19 [Recovering/Resolving]
  - Coccidioidomycosis [Recovered/Resolved]
  - Pneumonia fungal [Unknown]
  - Lung disorder [Unknown]
